FAERS Safety Report 16153846 (Version 2)
Quarter: 2019Q2

REPORT INFORMATION
  Report Type: Spontaneous
  Country: US (occurrence: US)
  Receive Date: 20190403
  Receipt Date: 20190403
  Transmission Date: 20190711
  Serious: Yes (Hospitalization, Other)
  Sender: FDA-Public Use
  Company Number: US-PFIZER INC-2019136755

PATIENT
  Age: 76 Year
  Sex: Female

DRUGS (4)
  1. WARFARIN [Concomitant]
     Active Substance: WARFARIN
     Indication: MYOCARDIAL INFARCTION
     Dosage: 2.5 MG, DAILY
  2. AMIODARONE HCL [Suspect]
     Active Substance: AMIODARONE HYDROCHLORIDE
     Dosage: 50 MG 3/5ML AMP-ISA
  3. COUMADIN [Concomitant]
     Active Substance: WARFARIN SODIUM
  4. WARFARIN [Concomitant]
     Active Substance: WARFARIN
     Indication: ANTICOAGULANT THERAPY

REACTIONS (1)
  - Atrial fibrillation [Unknown]
